FAERS Safety Report 5789046-9 (Version None)
Quarter: 2008Q2

REPORT INFORMATION
  Report Type: 
  Country: None (occurrence: None)
  Receive Date: 20080626
  Receipt Date: 20080624
  Transmission Date: 20081010
  Serious: Yes (Disabling)
  Sender: FDA-Public Use
  Company Number: B0523245A

PATIENT
  Age: 58 Year
  Sex: Female

DRUGS (2)
  1. VALTREX [Suspect]
     Indication: HERPES ZOSTER
     Dosage: 1000MG THREE TIMES PER DAY
     Route: 048
     Dates: start: 20080521, end: 20080522
  2. LORCAM [Concomitant]
     Indication: HERPES ZOSTER
     Dosage: 12MG PER DAY
     Route: 048
     Dates: start: 20080521, end: 20080522

REACTIONS (5)
  - ASTHENIA [None]
  - PAIN [None]
  - PYREXIA [None]
  - RENAL FAILURE ACUTE [None]
  - VOMITING [None]
